FAERS Safety Report 4749662-X (Version None)
Quarter: 2005Q3

REPORT INFORMATION
  Report Type: 
  Country: None (occurrence: None)
  Receive Date: 20050822
  Receipt Date: 20050309
  Transmission Date: 20060218
  Serious: Yes (Disabling)
  Sender: FDA-Public Use
  Company Number: US-MERCK-0503USA01686

PATIENT
  Age: 44 Year
  Sex: Female

DRUGS (2)
  1. VIOXX [Suspect]
     Indication: HEADACHE
     Route: 048
     Dates: start: 20040814, end: 20040827
  2. NAPROXEN [Concomitant]
     Route: 065

REACTIONS (4)
  - DEPRESSION [None]
  - HAEMORRHAGIC STROKE [None]
  - HEADACHE [None]
  - INSOMNIA [None]
